FAERS Safety Report 18521439 (Version 1)
Quarter: 2020Q4

REPORT INFORMATION
  Report Type: Spontaneous
  Country: US (occurrence: US)
  Receive Date: 20201118
  Receipt Date: 20201118
  Transmission Date: 20210114
  Serious: Yes (Hospitalization)
  Sender: FDA-Public Use
  Company Number: None

PATIENT
  Age: 53 Year
  Sex: Female

DRUGS (10)
  1. XARELTO [Suspect]
     Active Substance: RIVAROXABAN
  2. LOSARTAN. [Suspect]
     Active Substance: LOSARTAN
  3. ASPIRIN. [Suspect]
     Active Substance: ASPIRIN
  4. PANTOPRAZOLE [Suspect]
     Active Substance: PANTOPRAZOLE
  5. PRASUGREL. [Suspect]
     Active Substance: PRASUGREL
  6. MESALAMINE DR [Suspect]
     Active Substance: MESALAMINE
  7. HUMIRA [Suspect]
     Active Substance: ADALIMUMAB
     Indication: COLITIS
     Route: 058
  8. ATORVASTATIN [Suspect]
     Active Substance: ATORVASTATIN
  9. METOPROLOL ER [Suspect]
     Active Substance: METOPROLOL SUCCINATE
  10. DICYCLOMINE [Suspect]
     Active Substance: DICYCLOMINE HYDROCHLORIDE

REACTIONS (2)
  - Myocardial infarction [None]
  - Product dose omission issue [None]
